FAERS Safety Report 8936480 (Version 1)
Quarter: 2012Q4

REPORT INFORMATION
  Report Type: 
  Country: US (occurrence: US)
  Receive Date: 20121130
  Receipt Date: 20121130
  Transmission Date: 20130627
  Serious: Yes (Hospitalization)
  Sender: FDA-Public Use
  Company Number: US-ELI_LILLY_AND_COMPANY-US201211005801

PATIENT
  Sex: Male

DRUGS (2)
  1. ZYPREXA [Suspect]
     Dosage: 15 mg, qd
     Dates: end: 2012
  2. ZYPREXA [Suspect]
     Dosage: 5 mg, qd
     Dates: end: 2012

REACTIONS (2)
  - Dementia [Unknown]
  - Anger [Unknown]
